FAERS Safety Report 15472519 (Version 2)
Quarter: 2018Q4

REPORT INFORMATION
  Report Type: Spontaneous
  Country: US (occurrence: US)
  Receive Date: 20181008
  Receipt Date: 20181016
  Transmission Date: 20190205
  Serious: No
  Sender: FDA-Public Use
  Company Number: US-AMGEN-USASP2018135700

PATIENT
  Age: 72 Year
  Sex: Female

DRUGS (8)
  1. POTASSIUM [Concomitant]
     Active Substance: POTASSIUM
     Dosage: 20 MG, BID
  2. PREDNISONE. [Concomitant]
     Active Substance: PREDNISONE
     Dosage: 4 MG, QD
  3. TERAZOSIN [Concomitant]
     Active Substance: TERAZOSIN\TERAZOSIN HYDROCHLORIDE
     Dosage: 2 MG, QHS
  4. PROLIA [Suspect]
     Active Substance: DENOSUMAB
     Indication: OSTEOPOROSIS POSTMENOPAUSAL
     Dosage: UNK
     Route: 065
     Dates: start: 20180608
  5. FORTEO [Concomitant]
     Active Substance: TERIPARATIDE
     Dosage: UNK UNK, QD
  6. BYSTOLIC [Concomitant]
     Active Substance: NEBIVOLOL HYDROCHLORIDE
     Dosage: 10 MG, QD
  7. MOBIC [Concomitant]
     Active Substance: MELOXICAM
     Dosage: 15 MG, QD
  8. HYDROCHLOROTHIAZIDE. [Concomitant]
     Active Substance: HYDROCHLOROTHIAZIDE
     Dosage: 25 MG, QD

REACTIONS (7)
  - Drug hypersensitivity [Unknown]
  - Fatigue [Unknown]
  - Hypoacusis [Unknown]
  - Limb discomfort [Unknown]
  - Gait disturbance [Unknown]
  - Muscular weakness [Unknown]
  - Dyspnoea [Not Recovered/Not Resolved]

NARRATIVE: CASE EVENT DATE: 2018
